FAERS Safety Report 6691261-7 (Version None)
Quarter: 2010Q2

REPORT INFORMATION
  Report Type: 
  Country: None (occurrence: None)
  Receive Date: 20100422
  Receipt Date: 20100412
  Transmission Date: 20101027
  Serious: Yes (Other)
  Sender: FDA-Public Use
  Company Number: US-ASTRAZENECA-2009UW07567

PATIENT
  Sex: Female

DRUGS (14)
  1. SEROQUEL [Suspect]
     Dosage: 200-300 MG
     Route: 048
     Dates: start: 20050815
  2. ALBUTEROL [Concomitant]
     Dosage: 90 MCG
     Dates: start: 20040726
  3. RISPERDAL [Concomitant]
  4. LITHIUM [Concomitant]
     Dates: start: 20050510
  5. CLONAZEPAM [Concomitant]
     Dates: start: 20050815
  6. NEXIUM [Concomitant]
  7. DEPAKOTE ER [Concomitant]
  8. TRAZODONE [Concomitant]
  9. BENZTROPINE MESYLATE [Concomitant]
  10. HALOPERIDOL [Concomitant]
  11. DOCUSATE SODIUM [Concomitant]
  12. LEXAPRO [Concomitant]
  13. LISINOPRIL [Concomitant]
  14. ASPIRIN [Concomitant]
     Dates: start: 20070101

REACTIONS (3)
  - DIABETIC KETOACIDOSIS [None]
  - LACTIC ACIDOSIS [None]
  - TYPE 2 DIABETES MELLITUS [None]
